FAERS Safety Report 5496113-6 (Version None)
Quarter: 2007Q4

REPORT INFORMATION
  Report Type: 
  Country: None (occurrence: None)
  Receive Date: 20071025
  Receipt Date: 20070126
  Transmission Date: 20080405
  Serious: No
  Sender: FDA-Public Use
  Company Number: A0637187A

PATIENT
  Age: 36 Year
  Sex: Female

DRUGS (1)
  1. ADVAIR DISKUS 100/50 [Suspect]
     Indication: BRONCHITIS
     Route: 055
     Dates: start: 20070126

REACTIONS (6)
  - HEART RATE INCREASED [None]
  - IRRITABILITY [None]
  - NASAL CONGESTION [None]
  - NERVOUSNESS [None]
  - PALPITATIONS [None]
  - THERAPEUTIC RESPONSE UNEXPECTED [None]
